FAERS Safety Report 9146022 (Version 1)
Quarter: 2013Q1

REPORT INFORMATION
  Report Type: Spontaneous
  Country: US (occurrence: None)
  Receive Date: 20130206
  Receipt Date: 20130206
  Transmission Date: 20140127
  Serious: Yes (Death)
  Sender: FDA-Public Use
  Company Number: 2013-020

PATIENT
  Age: 41 Year
  Sex: Male

DRUGS (2)
  1. FAZACLO ODT CLOZAPINE [Suspect]
  2. FAZACLO ODT CLOZAPINE [Suspect]

REACTIONS (1)
  - Death [None]
